FAERS Safety Report 7520929-5 (Version None)
Quarter: 2011Q2

REPORT INFORMATION
  Report Type: 
  Country: None (occurrence: None)
  Receive Date: 20110603
  Receipt Date: 20101129
  Transmission Date: 20111010
  Serious: Yes (Other)
  Sender: FDA-Public Use
  Company Number: IL-BAYER-2010-003677

PATIENT
  Age: 44 Year
  Sex: Female

DRUGS (1)
  1. MIRENA [Suspect]
     Dosage: 20 ?G/D, CONT
     Route: 015
     Dates: start: 20100101, end: 20101124

REACTIONS (4)
  - VAGINAL HAEMORRHAGE [None]
  - HAEMORRHAGIC ANAEMIA [None]
  - DIZZINESS [None]
  - DEVICE EXPULSION [None]
